FAERS Safety Report 18615414 (Version 3)
Quarter: 2021Q1

REPORT INFORMATION
  Report Type: Spontaneous
  Country: JP (occurrence: JP)
  Receive Date: 20201215
  Receipt Date: 20210204
  Transmission Date: 20210419
  Serious: Yes (Death, Hospitalization, Other)
  Sender: FDA-Public Use
  Company Number: JP-009507513-2012JPN001050J

PATIENT
  Age: 71 Year
  Sex: Male
  Weight: 39 kg

DRUGS (7)
  1. GENINAX [Suspect]
     Active Substance: GARENOXACIN MESYLATE
     Indication: PYREXIA
     Dosage: 400 MILLIGRAM, QD
     Route: 048
     Dates: start: 20201205, end: 20201206
  2. BEPRICOR TABLETS 50MG [Concomitant]
     Indication: ATRIAL FIBRILLATION
     Dosage: 75 MILLIGRAM, BID
     Route: 048
     Dates: start: 20200921, end: 20201206
  3. CLOPIDOGREL [Concomitant]
     Active Substance: CLOPIDOGREL BISULFATE
     Indication: CEREBRAL INFARCTION
     Dosage: 75 MILLIGRAM, QD
     Route: 048
  4. KEYTRUDA [Suspect]
     Active Substance: PEMBROLIZUMAB
     Indication: LUNG SQUAMOUS CELL CARCINOMA STAGE IV
     Dosage: 200 MILLIGRAM, Q3W
     Route: 041
     Dates: start: 20201203, end: 20201203
  5. OLMESARTAN MEDOXOMIL. [Concomitant]
     Active Substance: OLMESARTAN MEDOXOMIL
     Indication: HYPERTENSION
     Dosage: 10 MILLIGRAM, QD
     Route: 048
     Dates: end: 20201206
  6. MAGNESIUM OXIDE. [Concomitant]
     Active Substance: MAGNESIUM OXIDE
     Indication: CONSTIPATION
     Dosage: 666 MILLIGRAM, TID
     Route: 048
     Dates: end: 20201206
  7. GENINAX [Suspect]
     Active Substance: GARENOXACIN MESYLATE
     Indication: INFECTION

REACTIONS (5)
  - Stress cardiomyopathy [Fatal]
  - Rhabdomyolysis [Fatal]
  - Renal impairment [Unknown]
  - Bacterial infection [Unknown]
  - Pyrexia [Unknown]

NARRATIVE: CASE EVENT DATE: 202012
